FAERS Safety Report 8172810-9 (Version None)
Quarter: 2012Q1

REPORT INFORMATION
  Report Type: 
  Country: None (occurrence: None)
  Receive Date: 20120223
  Receipt Date: 20120215
  Transmission Date: 20120608
  Serious: Yes (Hospitalization)
  Sender: FDA-Public Use
  Company Number: ES-GDP-12413095

PATIENT
  Age: 39 Year
  Sex: Female

DRUGS (2)
  1. HYDROQUINONE (HYDROQUINONE) [Suspect]
     Indication: PRODUCT USED FOR UNKNOWN INDICATION
     Dates: start: 20110101
  2. TACTUOBEN (BENZOYL PEROXIDE) [Suspect]
     Indication: PRODUCT USED FOR UNKNOWN INDICATION
     Dosage: TOPICAL
     Route: 061
     Dates: start: 20110101

REACTIONS (1)
  - SKIN REACTION [None]
